FAERS Safety Report 17245506 (Version 2)
Quarter: 2020Q1

REPORT INFORMATION
  Report Type: Report from Study
  Country: GB (occurrence: GB)
  Receive Date: 20200108
  Receipt Date: 20200319
  Transmission Date: 20200409
  Serious: Yes (Hospitalization, Other)
  Sender: FDA-Public Use
  Company Number: GB-TEVA-2020-GB-1164486

PATIENT
  Age: 8 Year
  Sex: Female
  Weight: 23.35 kg

DRUGS (7)
  1. DEXAMETHASONE. [Concomitant]
     Active Substance: DEXAMETHASONE
     Dosage: VARIABLE; 4MG BD WEANED TO 0.5MG SECOND DAILY
     Route: 065
     Dates: start: 20191101
  2. VANDETANIB. [Suspect]
     Active Substance: VANDETANIB
     Indication: BRAIN STEM GLIOMA
     Dosage: 100 MG, QOD,(65MG/M2)
     Route: 048
     Dates: start: 20191009, end: 20191014
  3. COTRIMOXAZOLE [Concomitant]
     Active Substance: SULFAMETHOXAZOLE\TRIMETHOPRIM
     Dosage: 360 MG BD ON SAT/SUN ONLY
     Route: 065
  4. EVEROLIMUS. [Suspect]
     Active Substance: EVEROLIMUS
     Dosage: 5 MG ON MONDAY, WEDNESDAY AND FRIDAY AND 2.5 MG ON TUESDAY, THURSDAY, SATURDAY AND SUNDAY
     Route: 048
     Dates: start: 20191001
  5. RANITIDINE. [Concomitant]
     Active Substance: RANITIDINE
     Dosage: 50 MG, BID
     Route: 065
     Dates: start: 20191018
  6. EVEROLIMUS. [Suspect]
     Active Substance: EVEROLIMUS
     Indication: BRAIN STEM GLIOMA
     Dosage: 5 MG ON MONDAY,WEDNESDAY AND FRIDAY AND 2.5 MG ON TUESDAY,THURSDAY,SATURDAY AND SUNDAY
     Route: 048
     Dates: start: 20190717
  7. VANDETANIB. [Suspect]
     Active Substance: VANDETANIB
     Dosage: 100 MG, QOD (65 MG/M2) , 100 MG 2 DAYS
     Route: 048
     Dates: start: 20191018, end: 20200207

REACTIONS (23)
  - Electrocardiogram QT prolonged [Recovered/Resolved]
  - Ocular hyperaemia [Recovered/Resolved]
  - White blood cell count decreased [Not Recovered/Not Resolved]
  - Myoclonus [Unknown]
  - Reflux gastritis [Unknown]
  - Abdominal distension [Recovered/Resolved]
  - Hemiparesis [Recovered/Resolved]
  - Ataxia [Recovered/Resolved]
  - Lymphocyte count decreased [Not Recovered/Not Resolved]
  - Reflux gastritis [Recovered/Resolved]
  - Neutrophil count decreased [Recovered/Resolved]
  - Alanine aminotransferase increased [Recovered/Resolved]
  - Blood creatinine increased [Recovered/Resolved]
  - Facial paralysis [Not Recovered/Not Resolved]
  - Facial paralysis [Recovered/Resolved]
  - Flatulence [Recovered/Resolved]
  - Blood cholesterol increased [Not Recovered/Not Resolved]
  - Facial paralysis [Unknown]
  - Stomatitis [Recovered/Resolved]
  - Product use in unapproved indication [Unknown]
  - Hypophosphataemia [Recovered/Resolved]
  - Blood creatinine increased [Unknown]
  - Neutrophil count decreased [Not Recovered/Not Resolved]

NARRATIVE: CASE EVENT DATE: 20191009
